FAERS Safety Report 17797742 (Version 1)
Quarter: 2020Q2

REPORT INFORMATION
  Report Type: Report from Study
  Country: US (occurrence: US)
  Receive Date: 20200518
  Receipt Date: 20200518
  Transmission Date: 20200714
  Serious: Yes (Other)
  Sender: FDA-Public Use
  Company Number: US-AMGEN-USASL2020077644

PATIENT
  Sex: Female

DRUGS (1)
  1. REPATHA [Suspect]
     Active Substance: EVOLOCUMAB
     Indication: BLOOD CALCIUM INCREASED
     Dosage: UNK
     Route: 065

REACTIONS (4)
  - Muscular weakness [Recovered/Resolved]
  - Migraine [Recovered/Resolved]
  - Off label use [Unknown]
  - Cerebrovascular accident [Recovered/Resolved]
